FAERS Safety Report 8008746-3 (Version None)
Quarter: 2011Q4

REPORT INFORMATION
  Report Type: 
  Country: None (occurrence: None)
  Receive Date: 20111227
  Receipt Date: 20111217
  Transmission Date: 20120403
  Serious: Yes (Hospitalization)
  Sender: FDA-Public Use
  Company Number: US-BAYER-2011-031636

PATIENT
  Age: 31 Year
  Sex: Female
  Weight: 68 kg

DRUGS (9)
  1. LISINOPRIL [Concomitant]
     Dosage: UNK
     Dates: start: 20080901
  2. ACYCLOVIR [Concomitant]
     Dosage: UNK
     Dates: start: 20080922
  3. DARVOCET [Concomitant]
  4. SERTRALINE HYDROCHLORIDE [Concomitant]
     Dosage: UNK
     Dates: start: 20071113
  5. NAPROXEN [Concomitant]
     Dosage: UNK
     Dates: start: 20080620
  6. YASMIN [Suspect]
     Indication: ORAL CONTRACEPTION
     Dosage: UNK
     Dates: start: 20060701, end: 20081101
  7. DROSPIRENONE AND ETHINYL ESTRADIOL [Suspect]
     Dosage: UNK
     Dates: start: 20080701, end: 20081101
  8. LORAZEPAM [Concomitant]
     Dosage: UNK
     Dates: start: 20080620
  9. ROBAXIN [Concomitant]

REACTIONS (2)
  - THROMBOSIS [None]
  - DEEP VEIN THROMBOSIS [None]
